FAERS Safety Report 7671001-5 (Version None)
Quarter: 2011Q3

REPORT INFORMATION
  Report Type: 
  Country: None (occurrence: None)
  Receive Date: 20110809
  Receipt Date: 20110728
  Transmission Date: 20111222
  Serious: Yes (Life-Threatening, Hospitalization, Other)
  Sender: FDA-Public Use
  Company Number: US-BAYER-201014053NA

PATIENT
  Age: 27 Year
  Sex: Female
  Weight: 62 kg

DRUGS (20)
  1. CLONIDINE [Concomitant]
  2. PROTONIX [Concomitant]
  3. YASMIN [Suspect]
     Indication: CONTRACEPTION
     Route: 048
     Dates: start: 20070101, end: 20070601
  4. NOVOLOG [Concomitant]
     Dosage: SLIDING SCALE
  5. REGLAN [Concomitant]
     Indication: RENAL FAILURE
  6. ZYVOX [Concomitant]
  7. VANCOMYCIN [Concomitant]
  8. HUMULIN R [Concomitant]
  9. LANTUS [Concomitant]
     Dosage: 18 UNITS
  10. ALDARA [Concomitant]
  11. HUMULIN N [Concomitant]
  12. IBUPROFEN [Concomitant]
     Dosage: USED VERY RARELY
  13. BENICAR [Concomitant]
     Dosage: 40 MG (DAILY DOSE), ,
  14. ATENOLOL [Concomitant]
     Dosage: 25 MG IN THE MORNING AND 25 MG AT BEDTIME
  15. YASMIN [Suspect]
     Indication: ACNE
     Dosage: UNK
     Dates: start: 20050311, end: 20060207
  16. YAZ [Suspect]
     Indication: ACNE
     Route: 048
     Dates: start: 20050101, end: 20060101
  17. NORVASC [Concomitant]
  18. YAZ [Suspect]
     Indication: CONTRACEPTION
  19. PREDNISONE [Concomitant]
  20. LASIX [Concomitant]

REACTIONS (11)
  - RENAL FAILURE [None]
  - KETOACIDOSIS [None]
  - DIABETIC NEPHROPATHY [None]
  - NAUSEA [None]
  - RENAL FAILURE ACUTE [None]
  - ANAEMIA [None]
  - FATIGUE [None]
  - VOMITING [None]
  - GENERALISED OEDEMA [None]
  - CONSTIPATION [None]
  - PROTEINURIA [None]
